FAERS Safety Report 19846064 (Version 2)
Quarter: 2021Q4

REPORT INFORMATION
  Report Type: Spontaneous
  Country: CA (occurrence: CA)
  Receive Date: 20210917
  Receipt Date: 20211207
  Transmission Date: 20220303
  Serious: Yes (Life-Threatening, Other)
  Sender: FDA-Public Use
  Company Number: CA-SA-SAC20210916000267

PATIENT
  Age: 47 Year
  Sex: Female

DRUGS (3)
  1. CEFIXIME [Suspect]
     Active Substance: CEFIXIME
     Indication: Sinusitis
     Dosage: 400 MG, QD
     Route: 048
     Dates: start: 20201023, end: 20201130
  2. RIFAMPIN [Suspect]
     Active Substance: RIFAMPIN
     Indication: Sinusitis
     Dosage: 400 MG, QD
     Route: 048
     Dates: start: 20200918, end: 20201030
  3. CLARITHROMYCIN [Concomitant]
     Active Substance: CLARITHROMYCIN
     Indication: Sinusitis
     Dosage: 500 MG, BID
     Route: 048
     Dates: start: 20200925

REACTIONS (13)
  - Cough [Recovering/Resolving]
  - Face oedema [Unknown]
  - Hepatic failure [Recovering/Resolving]
  - Lymphocyte count decreased [Recovering/Resolving]
  - Hyponatraemia [Recovering/Resolving]
  - Drug reaction with eosinophilia and systemic symptoms [Unknown]
  - Dyspnoea [Recovering/Resolving]
  - Aspartate aminotransferase increased [Recovering/Resolving]
  - Blood bilirubin increased [Recovering/Resolving]
  - Alanine aminotransferase increased [Recovering/Resolving]
  - Pyrexia [Recovering/Resolving]
  - Rash [Recovering/Resolving]
  - Eosinophil count increased [Recovering/Resolving]

NARRATIVE: CASE EVENT DATE: 20201024
